FAERS Safety Report 13874548 (Version 1)
Quarter: 2017Q3

REPORT INFORMATION
  Report Type: Spontaneous
  Country: US (occurrence: US)
  Receive Date: 20170816
  Receipt Date: 20170816
  Transmission Date: 20171127
  Serious: No
  Sender: FDA-Public Use
  Company Number: US-ROCHE-1131852

PATIENT
  Sex: Female

DRUGS (2)
  1. AVASTIN [Suspect]
     Active Substance: BEVACIZUMAB
     Indication: CHORIORETINAL DISORDER
     Route: 050
     Dates: start: 200911
  2. LUCENTIS [Suspect]
     Active Substance: RANIBIZUMAB
     Indication: CHORIORETINAL DISORDER
     Dosage: LAST DOSE ON 17/SEP/2012
     Route: 050
     Dates: start: 2010

REACTIONS (3)
  - Pregnancy [Unknown]
  - Treatment failure [Unknown]
  - Disease progression [Unknown]
